FAERS Safety Report 24253736 (Version 1)
Quarter: 2024Q3

REPORT INFORMATION
  Report Type: Spontaneous
  Country: US (occurrence: None)
  Receive Date: 20240826
  Receipt Date: 20240826
  Transmission Date: 20241017
  Serious: Yes (Death)
  Sender: Public
  Company Number: None

PATIENT
  Age: 64 Year
  Sex: Male

DRUGS (8)
  1. CABENUVA [Suspect]
     Active Substance: CABOTEGRAVIR\RILPIVIRINE
     Indication: HIV infection
     Dosage: OTHER QUANTITY : 600/900 IM;?OTHER FREQUENCY : EVERY2MONTHS;?OTHER ROUTE : INTRAMUSCULAR ;?
     Route: 050
     Dates: start: 20230516, end: 20240702
  2. ASPIRIN 81 [Concomitant]
  3. ATORVASTATIN [Concomitant]
     Active Substance: ATORVASTATIN
  4. BRILINTA [Concomitant]
     Active Substance: TICAGRELOR
  5. CARVEDILOL [Concomitant]
     Active Substance: CARVEDILOL
  6. EZETIMIBE [Concomitant]
     Active Substance: EZETIMIBE
  7. FUROSEMIDE [Concomitant]
     Active Substance: FUROSEMIDE
  8. DILTIAZEM [Concomitant]
     Active Substance: DILTIAZEM

REACTIONS (1)
  - Death [None]

NARRATIVE: CASE EVENT DATE: 20240702
